FAERS Safety Report 7669596-0 (Version None)
Quarter: 2011Q3

REPORT INFORMATION
  Report Type: 
  Country: None (occurrence: None)
  Receive Date: 20110808
  Receipt Date: 20110729
  Transmission Date: 20111222
  Serious: Yes (Other)
  Sender: FDA-Public Use
  Company Number: US-ELI_LILLY_AND_COMPANY-US201108000425

PATIENT
  Age: 45 Year
  Sex: Male

DRUGS (1)
  1. EFFIENT [Suspect]
     Indication: ACUTE MYOCARDIAL INFARCTION
     Dosage: UNK UNK, UNKNOWN
     Route: 065

REACTIONS (4)
  - LEUKAEMIA [None]
  - MALAISE [None]
  - SENSORY DISTURBANCE [None]
  - FATIGUE [None]
